FAERS Safety Report 15572793 (Version 5)
Quarter: 2021Q2

REPORT INFORMATION
  Report Type: Report from Study
  Country: US (occurrence: US)
  Receive Date: 20181031
  Receipt Date: 20210610
  Transmission Date: 20210716
  Serious: Yes (Hospitalization)
  Sender: FDA-Public Use
  Company Number: US-JAZZ-2018-US-010136

PATIENT
  Sex: Female

DRUGS (33)
  1. TRAMADOL. [Concomitant]
     Active Substance: TRAMADOL
  2. LUNESTA [Concomitant]
     Active Substance: ESZOPICLONE
  3. DULOXETINE HCL [Concomitant]
     Active Substance: DULOXETINE HYDROCHLORIDE
  4. HYDROCODONE/HOMATROPINE [Concomitant]
     Active Substance: HOMATROPINE METHYLBROMIDE\HYDROCODONE BITARTRATE
  5. LORAZEPAM. [Concomitant]
     Active Substance: LORAZEPAM
  6. LORATADINE. [Concomitant]
     Active Substance: LORATADINE
  7. BENTYL [Concomitant]
     Active Substance: DICYCLOMINE HYDROCHLORIDE
  8. LILETTA [Concomitant]
     Active Substance: LEVONORGESTREL
  9. XYREM [Suspect]
     Active Substance: SODIUM OXYBATE
     Dosage: DOSE ADJUSTMENT
     Route: 048
     Dates: start: 201209, end: 201806
  10. ERGOCALCIFEROL. [Concomitant]
     Active Substance: ERGOCALCIFEROL
  11. RITALIN [Concomitant]
     Active Substance: METHYLPHENIDATE HYDROCHLORIDE
  12. MOMETASONE FUROATE. [Concomitant]
     Active Substance: MOMETASONE FUROATE
  13. XYREM [Suspect]
     Active Substance: SODIUM OXYBATE
     Indication: NARCOLEPSY
     Dosage: 2.25 G, BID
     Route: 048
     Dates: start: 201208, end: 201209
  14. XYREM [Suspect]
     Active Substance: SODIUM OXYBATE
     Dosage: 4 G, SECOND DOSE
     Route: 048
     Dates: start: 2018
  15. ASCORBIC ACID. [Concomitant]
     Active Substance: ASCORBIC ACID
  16. XYREM [Suspect]
     Active Substance: SODIUM OXYBATE
     Dosage: 3.75 G, BID
     Route: 048
     Dates: start: 201806, end: 2018
  17. SINGULAIR [Concomitant]
     Active Substance: MONTELUKAST SODIUM
  18. SERTRALINE HCL [Concomitant]
     Active Substance: SERTRALINE HYDROCHLORIDE
  19. PATANASE [Concomitant]
     Active Substance: OLOPATADINE HYDROCHLORIDE
  20. BACLOFEN. [Concomitant]
     Active Substance: BACLOFEN
  21. CALCIUM CARBONATE. [Concomitant]
     Active Substance: CALCIUM CARBONATE
  22. FLUTICASONE PROPIONATE. [Concomitant]
     Active Substance: FLUTICASONE PROPIONATE
  23. BUSPIRONE HCL [Concomitant]
     Active Substance: BUSPIRONE HYDROCHLORIDE
  24. MODAFINIL. [Concomitant]
     Active Substance: MODAFINIL
  25. ONDANSETRON [Concomitant]
     Active Substance: ONDANSETRON
  26. TEMAZEPAM. [Concomitant]
     Active Substance: TEMAZEPAM
     Indication: PRODUCT USED FOR UNKNOWN INDICATION
  27. ALLEGRA [Concomitant]
     Active Substance: FEXOFENADINE HYDROCHLORIDE
  28. TOCOPHEROL [Concomitant]
     Active Substance: TOCOPHEROL
  29. XYREM [Suspect]
     Active Substance: SODIUM OXYBATE
     Dosage: 3.75 G, FIRST DOSE
     Route: 048
     Dates: start: 2018
  30. VITAMIN B12 [Concomitant]
     Active Substance: CYANOCOBALAMIN
  31. STRATTERA [Concomitant]
     Active Substance: ATOMOXETINE HYDROCHLORIDE
  32. ESCITALOPRAM [Concomitant]
     Active Substance: ESCITALOPRAM OXALATE
  33. SPRINTEC [Concomitant]
     Active Substance: ETHINYL ESTRADIOL\NORGESTIMATE

REACTIONS (8)
  - Irritable bowel syndrome [Not Recovered/Not Resolved]
  - Flatulence [Unknown]
  - Vomiting [Unknown]
  - Gastrooesophageal reflux disease [Not Recovered/Not Resolved]
  - Constipation [Unknown]
  - Retching [Not Recovered/Not Resolved]
  - Therapeutic response decreased [Unknown]
  - Nausea [Not Recovered/Not Resolved]
